FAERS Safety Report 16976035 (Version 1)
Quarter: 2019Q4

REPORT INFORMATION
  Report Type: Spontaneous
  Country: CA (occurrence: CA)
  Receive Date: 20191030
  Receipt Date: 20191030
  Transmission Date: 20200122
  Serious: Yes (Other)
  Sender: FDA-Public Use
  Company Number: CA-ASTRAZENECA-2019SF51133

PATIENT
  Sex: Male

DRUGS (2)
  1. ZOLEDRONIC ACID [Concomitant]
     Active Substance: ZOLEDRONIC ACID
     Dates: start: 201907
  2. TAGRISSO [Suspect]
     Active Substance: OSIMERTINIB
     Indication: NON-SMALL CELL LUNG CANCER STAGE IV
     Route: 048
     Dates: start: 201902

REACTIONS (6)
  - Body temperature increased [Unknown]
  - Depressed mood [Unknown]
  - Metastases to central nervous system [Unknown]
  - Neoplasm progression [Unknown]
  - Cough [Unknown]
  - Gait disturbance [Unknown]
